FAERS Safety Report 20245731 (Version 2)
Quarter: 2022Q1

REPORT INFORMATION
  Report Type: Spontaneous
  Country: ES (occurrence: ES)
  Receive Date: 20211229
  Receipt Date: 20220104
  Transmission Date: 20220423
  Serious: Yes (Life-Threatening, Hospitalization)
  Sender: FDA-Public Use
  Company Number: None

PATIENT
  Age: 69 Year
  Sex: Male

DRUGS (6)
  1. OMEPRAZOLE [Suspect]
     Active Substance: OMEPRAZOLE
     Indication: Product used for unknown indication
     Dosage: 20 MG, 1 TOTAL (ONCE/SINGLE)
     Route: 048
     Dates: start: 20211116, end: 20211116
  2. AMOXICILLIN [Suspect]
     Active Substance: AMOXICILLIN
     Indication: Infection
     Dosage: 750 MG, Q8H
     Route: 065
     Dates: start: 20211116, end: 20211116
  3. AMOXICILLIN [Suspect]
     Active Substance: AMOXICILLIN
     Dosage: 2250 MG, Q8H
     Route: 065
     Dates: start: 20211116, end: 20211116
  4. METAMIZOLE\PROPOXYPHENE [Suspect]
     Active Substance: METAMIZOLE\PROPOXYPHENE
     Indication: Analgesic therapy
     Dosage: UNK (CAPSULAS DURAS, 20 CAPSULAS)
     Route: 048
     Dates: start: 20211116, end: 20211116
  5. ENALAPRIL MALEATE\HYDROCHLOROTHIAZIDE [Concomitant]
     Active Substance: ENALAPRIL MALEATE\HYDROCHLOROTHIAZIDE
     Indication: Product used for unknown indication
     Dosage: 20 MG/12.5 MG, IN THE MORNING
     Route: 065
  6. SIMVASTATIN [Concomitant]
     Active Substance: SIMVASTATIN
     Indication: Product used for unknown indication
     Dosage: 10 MG, QHS ( IN THE NIGHT)
     Route: 065

REACTIONS (9)
  - Acute kidney injury [Recovered/Resolved]
  - Anaphylactic shock [Recovered/Resolved]
  - Lip oedema [Recovered/Resolved]
  - Wheezing [Recovered/Resolved]
  - Pruritus [Recovered/Resolved]
  - Rash [Recovered/Resolved]
  - Abdominal pain [Recovered/Resolved]
  - Eyelid oedema [Recovered/Resolved]
  - Respiratory distress [Recovered/Resolved]

NARRATIVE: CASE EVENT DATE: 20211116
